FAERS Safety Report 4459775-8 (Version None)
Quarter: 2004Q3

REPORT INFORMATION
  Report Type: 
  Country: None (occurrence: None)
  Receive Date: 20040928
  Receipt Date: 20040331
  Transmission Date: 20050211
  Serious: No
  Sender: FDA-Public Use
  Company Number: US-BRISTOL-MYERS SQUIBB COMPANY-12549267

PATIENT
  Age: 33 Year
  Sex: Male

DRUGS (3)
  1. KENALOG-40 [Suspect]
     Indication: ARTHRITIS
     Dosage: 2 CC INJECTION OF KENALOG-40 MG MIXED WITH LIDOCAINE
     Route: 014
     Dates: start: 20040331, end: 20040331
  2. LIDOCAINE [Suspect]
     Indication: ARTHRITIS
     Dosage: INJECTION
     Route: 051
     Dates: start: 20040331, end: 20040331
  3. IBUPROFEN [Concomitant]

REACTIONS (1)
  - VISION BLURRED [None]
